FAERS Safety Report 10090666 (Version 2)
Quarter: 2014Q2

REPORT INFORMATION
  Report Type: Spontaneous
  Country: US (occurrence: US)
  Receive Date: 20140421
  Receipt Date: 20140507
  Transmission Date: 20141212
  Serious: No
  Sender: FDA-Public Use
  Company Number: US-TEVA-476839USA

PATIENT
  Age: 50 Year
  Sex: Female
  Weight: 77.18 kg

DRUGS (2)
  1. NUVIGIL [Suspect]
     Indication: NARCOLEPSY
     Route: 048
     Dates: start: 2011, end: 2013
  2. AMPHETAMINE W/DEXTROAMPHETAMINE [Suspect]
     Indication: NARCOLEPSY

REACTIONS (1)
  - Head injury [Recovered/Resolved]
